FAERS Safety Report 25891138 (Version 2)
Quarter: 2025Q4

REPORT INFORMATION
  Report Type: Report from Study
  Country: US (occurrence: US)
  Receive Date: 20251007
  Receipt Date: 20251018
  Transmission Date: 20260118
  Serious: Yes (Other)
  Sender: ALEXION PHARMACEUTICALS
  Company Number: US-ASTRAZENECA-202509USA027896US

PATIENT
  Age: 48 Year
  Sex: Female

DRUGS (1)
  1. STRENSIQ [Suspect]
     Active Substance: ASFOTASE ALFA
     Indication: Hypophosphataemia
     Dosage: 1 MILLIGRAM, SIX TIMES/WEEK

REACTIONS (11)
  - Deafness [Unknown]
  - Postoperative thrombosis [Unknown]
  - Fatigue [Unknown]
  - Hysterectomy [Unknown]
  - Muscular weakness [Unknown]
  - Balance disorder [Unknown]
  - Dizziness [Unknown]
  - Hypoaesthesia [Unknown]
  - Paraesthesia [Unknown]
  - Pain in extremity [Unknown]
  - Arthralgia [Unknown]
